FAERS Safety Report 24337308 (Version 1)
Quarter: 2024Q3

REPORT INFORMATION
  Report Type: Report from Study
  Country: CN (occurrence: CN)
  Receive Date: 20240919
  Receipt Date: 20240919
  Transmission Date: 20241017
  Serious: Yes (Other)
  Sender: UCB
  Company Number: CN-UCBSA-2024046826

PATIENT

DRUGS (3)
  1. LEVETIRACETAM [Suspect]
     Active Substance: LEVETIRACETAM
     Indication: Epilepsy
     Dosage: 10 MILLIGRAM/KILOGRAM/DOSE, 2X/DAY (BID)
     Route: 048
  2. LEVETIRACETAM [Suspect]
     Active Substance: LEVETIRACETAM
     Dosage: 20 MILLIGRAM/KILOGRAM/DOSE, 2X/DAY (BID)
     Route: 048
  3. LEVETIRACETAM [Suspect]
     Active Substance: LEVETIRACETAM
     Dosage: 40 MILLIGRAM/KILOGRAM/DOSE, 2X/DAY (BID)
     Route: 048

REACTIONS (4)
  - Seizure [Unknown]
  - Arrhythmia [Unknown]
  - Gastrointestinal disorder [Unknown]
  - Adverse event [Unknown]
